FAERS Safety Report 9651225 (Version 2)
Quarter: 2014Q1

REPORT INFORMATION
  Report Type: Spontaneous
  Country: US (occurrence: US)
  Receive Date: 20131029
  Receipt Date: 20140124
  Transmission Date: 20141002
  Serious: No
  Sender: FDA-Public Use
  Company Number: US-BIOGENIDEC-2013BI070922

PATIENT
  Sex: Female

DRUGS (4)
  1. TECFIDERA [Suspect]
     Indication: MULTIPLE SCLEROSIS
     Route: 048
     Dates: start: 20130705
  2. PAXIL [Concomitant]
  3. LEVOFLOXACIN [Concomitant]
  4. RITALIN [Concomitant]

REACTIONS (2)
  - Headache [Unknown]
  - Flushing [Unknown]
